FAERS Safety Report 6667688-6 (Version None)
Quarter: 2010Q2

REPORT INFORMATION
  Report Type: 
  Country: None (occurrence: None)
  Receive Date: 20100405
  Receipt Date: 20100330
  Transmission Date: 20101027
  Serious: Yes (Life-Threatening)
  Sender: FDA-Public Use
  Company Number: ES-BRISTOL-MYERS SQUIBB COMPANY-15044795

PATIENT
  Age: 78 Year
  Sex: Male

DRUGS (12)
  1. METFORMIN HCL [Suspect]
     Indication: DIABETES MELLITUS
     Route: 048
     Dates: end: 20100113
  2. CAPTOPRIL [Suspect]
     Indication: ACUTE MYOCARDIAL INFARCTION
     Route: 048
     Dates: start: 20091127, end: 20091204
  3. EMCONCOR [Suspect]
     Indication: ACUTE MYOCARDIAL INFARCTION
     Dosage: EMCONCOR COR 2.5MG
     Route: 048
     Dates: start: 20091210, end: 20100112
  4. RANITIDINE [Suspect]
     Indication: PROPHYLAXIS AGAINST GASTROINTESTINAL ULCER
     Route: 048
     Dates: start: 20090127, end: 20100112
  5. ASPIRIN [Suspect]
     Indication: ACUTE MYOCARDIAL INFARCTION
     Route: 048
     Dates: start: 20091126
  6. COZAAR [Suspect]
     Indication: ACUTE MYOCARDIAL INFARCTION
     Dosage: 4DEC09-5DEC09 10DEC09-12JAN2010
     Route: 048
     Dates: start: 20091204, end: 20100112
  7. EZETROL [Suspect]
     Indication: ACUTE MYOCARDIAL INFARCTION
     Route: 048
     Dates: start: 20091216, end: 20100112
  8. PLAVIX [Suspect]
     Indication: ACUTE MYOCARDIAL INFARCTION
     Route: 048
     Dates: start: 20091126, end: 20100112
  9. RONAME [Suspect]
     Indication: ACUTE MYOCARDIAL INFARCTION
     Route: 048
     Dates: end: 20091204
  10. GLIMEPIRIDE [Suspect]
     Indication: ACUTE MYOCARDIAL INFARCTION
     Route: 048
     Dates: start: 20091110, end: 20100112
  11. ZARATOR [Suspect]
     Indication: ACUTE MYOCARDIAL INFARCTION
     Route: 048
     Dates: start: 20091127, end: 20091204
  12. CETIRIZINE HCL [Suspect]
     Indication: URTICARIA
     Route: 048
     Dates: start: 20091204, end: 20091207

REACTIONS (1)
  - NEUTROPENIA [None]
